FAERS Safety Report 18540232 (Version 1)
Quarter: 2020Q4

REPORT INFORMATION
  Report Type: Spontaneous
  Country: US (occurrence: US)
  Receive Date: 20201124
  Receipt Date: 20201124
  Transmission Date: 20210114
  Serious: Yes (Other)
  Sender: FDA-Public Use
  Company Number: None

PATIENT
  Age: 62 Year
  Sex: Female

DRUGS (7)
  1. HYDROCHLOROT [Concomitant]
     Active Substance: HYDROCHLOROTHIAZIDE
  2. CLONAZEPAM. [Concomitant]
     Active Substance: CLONAZEPAM
  3. FISH OIL [Concomitant]
     Active Substance: FISH OIL
  4. TRICOR [Concomitant]
     Active Substance: FENOFIBRATE
  5. UBRELVY [Suspect]
     Active Substance: UBROGEPANT
     Indication: MIGRAINE
     Dosage: ?          QUANTITY:1 TABLET(S);OTHER FREQUENCY:JUST TOOK 1 TIME;?
     Route: 048
     Dates: start: 20201018, end: 20201018
  6. METRONIDAZOLE. [Suspect]
     Active Substance: METRONIDAZOLE
  7. CENTRUM SILVER PLUS MINERALS [Concomitant]

REACTIONS (1)
  - Seizure [None]

NARRATIVE: CASE EVENT DATE: 20201018
